FAERS Safety Report 10503900 (Version 5)
Quarter: 2014Q4

REPORT INFORMATION
  Report Type: Spontaneous
  Country: DK (occurrence: DK)
  Receive Date: 20141008
  Receipt Date: 20141115
  Transmission Date: 20150528
  Serious: Yes (Hospitalization, Other)
  Sender: FDA-Public Use
  Company Number: DK-AUROBINDO-AUR-APL-2014-10433

PATIENT
  Age: 32 Year
  Sex: Female

DRUGS (9)
  1. FLUCONAZOLE 200MG (FLUCONAZOLE) UNKNOWN, 200MG [Suspect]
     Active Substance: FLUCONAZOLE
     Dosage: 400 MG, ONCE A DAY
     Route: 065
  2. AMBISOME [Suspect]
     Active Substance: AMPHOTERICIN B
     Indication: SPONDYLITIS
     Dosage: 4 MG/KG, UNK
     Route: 065
  3. FLUCONAZOLE 200MG (FLUCONAZOLE) UNKNOWN, 200MG [Suspect]
     Active Substance: FLUCONAZOLE
     Dosage: 600 MG, ONCE A DAY
     Route: 065
  4. CASPOFUNGIN [Suspect]
     Active Substance: CASPOFUNGIN
     Indication: SPONDYLITIS
     Dosage: 70 MG, UNK
     Route: 065
  5. CASPOFUNGIN [Suspect]
     Active Substance: CASPOFUNGIN
     Dosage: 50 MG, UNK (LOADING DOSE)
     Route: 065
  6. FLUCYTOSINE. [Concomitant]
     Active Substance: FLUCYTOSINE
     Indication: CANDIDA INFECTION
     Dosage: UNK
     Route: 065
  7. FLUCONAZOLE 200MG [Suspect]
     Active Substance: FLUCONAZOLE
     Indication: SPONDYLITIS
     Dosage: 200 MG, ONCE A DAY
     Route: 065
  8. AMBISOME [Suspect]
     Active Substance: AMPHOTERICIN B
     Dosage: 6 MG/KG, UNK
     Route: 065
  9. AMBISOME [Suspect]
     Active Substance: AMPHOTERICIN B
     Dosage: 5 MG/KG, UNK
     Route: 065

REACTIONS (13)
  - Blood creatinine increased [Unknown]
  - Pregnancy [None]
  - Candida infection [Unknown]
  - C-reactive protein abnormal [Unknown]
  - Renal impairment [Not Recovered/Not Resolved]
  - Drug ineffective [Unknown]
  - Malaise [Unknown]
  - Condition aggravated [Unknown]
  - Pyrexia [Unknown]
  - Osteomyelitis [Unknown]
  - Spondylitis [Unknown]
  - Back pain [Unknown]
  - Vomiting [Unknown]
